FAERS Safety Report 8987066 (Version 1)
Quarter: 2012Q4

REPORT INFORMATION
  Report Type: 
  Country: US (occurrence: US)
  Receive Date: 20121226
  Receipt Date: 20121226
  Transmission Date: 20130627
  Serious: Yes (Other)
  Sender: FDA-Public Use
  Company Number: PHHY2012US118301

PATIENT
  Age: 75 Year
  Sex: Female

DRUGS (2)
  1. ASCRIPTIN BUFFERED REG STRENGTH TABLETS [Suspect]
     Indication: RHEUMATOID ARTHRITIS
     Dosage: 6 DF, BID
     Route: 048
     Dates: start: 1972
  2. MAALOX MAX ANTACID/ANTI-GAS [Concomitant]
     Dosage: 2 DF, BID
     Route: 048
     Dates: start: 2002

REACTIONS (2)
  - Neoplasm malignant [Unknown]
  - Incorrect drug administration duration [Unknown]
